FAERS Safety Report 13527164 (Version 2)
Quarter: 2017Q3

REPORT INFORMATION
  Report Type: Other
  Country: DE (occurrence: GB)
  Receive Date: 20170509
  Receipt Date: 20170727
  Transmission Date: 20171127
  Serious: Yes (Other)
  Sender: FDA-Public Use
  Company Number: DE-HERITAGE PHARMACEUTICALS-2017HTG00103

PATIENT
  Sex: Female
  Weight: 65 kg

DRUGS (18)
  1. ALLOPURINOL. [Suspect]
     Active Substance: ALLOPURINOL
     Dosage: 700 MG, 1X/DAY
  2. PARACETAMOL [Suspect]
     Active Substance: ACETAMINOPHEN
  3. DEXAMETHASONE. [Suspect]
     Active Substance: DEXAMETHASONE
  4. IDARUBICIN HYDROCHLORIDE. [Suspect]
     Active Substance: IDARUBICIN HYDROCHLORIDE
     Dosage: 5 MG/M2, UNK
  5. TAZOCIN [Suspect]
     Active Substance: PIPERACILLIN SODIUM\TAZOBACTAM SODIUM
  6. CYCLIZINE [Suspect]
     Active Substance: CYCLIZINE
  7. GENTAMICIN. [Suspect]
     Active Substance: GENTAMICIN
  8. NEUPOGEN [Suspect]
     Active Substance: FILGRASTIM
  9. PROCHLORPERAZINE. [Suspect]
     Active Substance: PROCHLORPERAZINE
  10. ITRACONAZOLE. [Suspect]
     Active Substance: ITRACONAZOLE
  11. MITOXANTRONE [Concomitant]
     Active Substance: MITOXANTRONE HYDROCHLORIDE
     Dosage: 10 MG/M2, UNK
  12. ACYCLOVIR. [Suspect]
     Active Substance: ACYCLOVIR
     Indication: ORAL HERPES
  13. MACROGOL [Suspect]
     Active Substance: POLYETHYLENE GLYCOLS
  14. TRETINOIN. [Suspect]
     Active Substance: TRETINOIN
     Dosage: 22.5 MG/M2, 2X/DAY
     Route: 048
  15. OMEPRAZOLE. [Suspect]
     Active Substance: OMEPRAZOLE
  16. IDARUBICIN HYDROCHLORIDE. [Suspect]
     Active Substance: IDARUBICIN HYDROCHLORIDE
     Indication: ACUTE PROMYELOCYTIC LEUKAEMIA
     Dosage: 5 MG/M2, UNK
     Route: 042
     Dates: start: 2017, end: 2017
  17. IDARUBICIN HYDROCHLORIDE. [Suspect]
     Active Substance: IDARUBICIN HYDROCHLORIDE
     Dosage: 12 MG/M2, UNK
  18. TRETINOIN. [Suspect]
     Active Substance: TRETINOIN
     Indication: ACUTE PROMYELOCYTIC LEUKAEMIA
     Dosage: 22.5 MG/M2, 2X/DAY
     Route: 048
     Dates: start: 20170207, end: 20170308

REACTIONS (5)
  - Oral herpes [Recovered/Resolved]
  - Exposure during pregnancy [Recovered/Resolved]
  - Neutropenic sepsis [Recovered/Resolved]
  - Mucosal inflammation [Recovered/Resolved]
  - Thrombocytopenia [Recovered/Resolved]
